FAERS Safety Report 14267007 (Version 3)
Quarter: 2018Q1

REPORT INFORMATION
  Report Type: Spontaneous
  Country: US (occurrence: US)
  Receive Date: 20171211
  Receipt Date: 20180111
  Transmission Date: 20180508
  Serious: Yes (Death, Life-Threatening, Hospitalization)
  Sender: FDA-Public Use
  Company Number: US-ACCORD-061693

PATIENT
  Age: 74 Year
  Sex: Male
  Weight: 82 kg

DRUGS (10)
  1. DECITABINE. [Suspect]
     Active Substance: DECITABINE
     Indication: ACUTE MYELOID LEUKAEMIA
     Route: 042
     Dates: start: 20170830, end: 20170903
  2. ACICLOVIR [Concomitant]
     Active Substance: ACYCLOVIR
     Dates: start: 201512
  3. PARACETAMOL [Concomitant]
     Active Substance: ACETAMINOPHEN
     Dates: start: 20160516
  4. BENZOCAINE. [Concomitant]
     Active Substance: BENZOCAINE
     Dates: start: 20170830, end: 20170831
  5. LEVOFLOXACIN. [Concomitant]
     Active Substance: LEVOFLOXACIN
     Dates: start: 201512
  6. TALAZOPARIB [Suspect]
     Active Substance: TALAZOPARIB
     Indication: ACUTE MYELOID LEUKAEMIA
     Route: 048
     Dates: start: 20170830, end: 20170922
  7. SIMVASTATIN. [Concomitant]
     Active Substance: SIMVASTATIN
     Dates: start: 2007
  8. PANTOPRAZOLE [Concomitant]
     Active Substance: PANTOPRAZOLE
     Dates: start: 201512
  9. ONDANSETRON [Concomitant]
     Active Substance: ONDANSETRON
     Dates: start: 20170830, end: 20170903
  10. MAGNESIUM OXIDE. [Concomitant]
     Active Substance: MAGNESIUM OXIDE
     Dates: start: 20170830, end: 20170830

REACTIONS (7)
  - Hypoxia [Not Recovered/Not Resolved]
  - Oropharyngeal pain [Unknown]
  - Respiratory distress [Not Recovered/Not Resolved]
  - Septic shock [Fatal]
  - Productive cough [Unknown]
  - Acidosis [Not Recovered/Not Resolved]
  - Febrile neutropenia [Not Recovered/Not Resolved]

NARRATIVE: CASE EVENT DATE: 20170919
